FAERS Safety Report 4725688-7 (Version None)
Quarter: 2005Q3

REPORT INFORMATION
  Report Type: 
  Country: None (occurrence: None)
  Receive Date: 20050722
  Receipt Date: 20050722
  Transmission Date: 20060218
  Serious: Yes (Hospitalization)
  Sender: FDA-Public Use
  Company Number: None

PATIENT
  Age: 47 Year
  Sex: Female

DRUGS (1)
  1. OXYCODONE [Suspect]
     Dosage: 5MG   ORAL
     Route: 048

REACTIONS (1)
  - NAUSEA [None]
